FAERS Safety Report 9469651 (Version 1)
Quarter: 2013Q3

REPORT INFORMATION
  Report Type: Spontaneous
  Country: US (occurrence: None)
  Receive Date: 20130820
  Receipt Date: 20130820
  Transmission Date: 20140515
  Serious: Yes (Death)
  Sender: FDA-Public Use
  Company Number: None

PATIENT
  Age: 30 Year
  Sex: Male
  Weight: 67.13 kg

DRUGS (1)
  1. GEODON [Suspect]
     Dates: start: 20110622, end: 20110626

REACTIONS (4)
  - Cardiac arrest [None]
  - Status epilepticus [None]
  - Fungal infection [None]
  - HIV infection [None]
